FAERS Safety Report 7119195-4 (Version None)
Quarter: 2010Q4

REPORT INFORMATION
  Report Type: 
  Country: None (occurrence: None)
  Receive Date: 20101123
  Receipt Date: 20091211
  Transmission Date: 20110411
  Serious: No
  Sender: FDA-Public Use
  Company Number: US-MYLANLABS-2009S1021391

PATIENT
  Sex: Female

DRUGS (2)
  1. FUROSEMIDE TABLETS, USP [Suspect]
  2. TRIAMTERENE AND HYDROCHLOROTHIAZIDE [Suspect]

REACTIONS (1)
  - ALOPECIA [None]
